FAERS Safety Report 12951950 (Version 1)
Quarter: 2016Q4

REPORT INFORMATION
  Report Type: Spontaneous
  Country: US (occurrence: US)
  Receive Date: 20161117
  Receipt Date: 20161117
  Transmission Date: 20170207
  Serious: No
  Sender: FDA-Public Use
  Company Number: US-TEVA-711917USA

PATIENT
  Sex: Male

DRUGS (1)
  1. QNASL [Suspect]
     Active Substance: BECLOMETHASONE DIPROPIONATE
     Route: 045

REACTIONS (2)
  - Wrong technique in product usage process [Unknown]
  - Nasal discomfort [Recovered/Resolved]
